FAERS Safety Report 6813239-2 (Version None)
Quarter: 2010Q3

REPORT INFORMATION
  Report Type: 
  Country: None (occurrence: None)
  Receive Date: 20100701
  Receipt Date: 20100624
  Transmission Date: 20110219
  Serious: Yes (Other)
  Sender: FDA-Public Use
  Company Number: US-PFIZER INC-2010079273

PATIENT
  Sex: Female
  Weight: 62 kg

DRUGS (2)
  1. CELEBREX [Suspect]
     Indication: CARPAL TUNNEL SYNDROME
     Dosage: 200 MG (1 OR 2XDAY), AS NEEDED (
     Route: 048
     Dates: start: 20100517
  2. CELEBREX [Suspect]
     Dosage: 400 MG, AS NEEDED
     Route: 048
     Dates: end: 20100624

REACTIONS (1)
  - TENDON PAIN [None]
